FAERS Safety Report 18420534 (Version 1)
Quarter: 2020Q4

REPORT INFORMATION
  Report Type: Spontaneous
  Country: DK (occurrence: DK)
  Receive Date: 20201023
  Receipt Date: 20201023
  Transmission Date: 20210114
  Serious: Yes (Other)
  Sender: FDA-Public Use
  Company Number: DK-TEVA-2020-DK-1840564

PATIENT
  Age: 60 Year
  Sex: Male

DRUGS (19)
  1. FUROSEMIDE. [Concomitant]
     Active Substance: FUROSEMIDE
     Indication: RENAL FAILURE
     Dosage: 1000 MG
     Route: 048
     Dates: start: 20180625
  2. DARBEPOETIN ALFA [Concomitant]
     Active Substance: DARBEPOETIN ALFA
     Indication: DIALYSIS
     Dosage: STRENGTH AND DOSE: UNKNOWN
  3. HEPARIN [Concomitant]
     Active Substance: HEPARIN SODIUM
     Indication: DIALYSIS
     Dosage: STRENGTH AND DOSE UNKNOWN
  4. IPRAMOL STERI-NEB [Suspect]
     Active Substance: ALBUTEROL SULFATE\IPRATROPIUM BROMIDE
     Indication: CHRONIC OBSTRUCTIVE PULMONARY DISEASE
     Dosage: DOSAGE: 1DF 10 TIMES THE FIRST DAY. 3 THE SECOND DAY. 2 THE THIRD.?STRENGTH: 2.5+0.5 MG
     Route: 055
     Dates: start: 20200924, end: 20200926
  5. MONTELUKAST [Concomitant]
     Active Substance: MONTELUKAST SODIUM
     Indication: ASTHMA
     Dosage: 10MG
     Route: 048
     Dates: start: 20200604
  6. BISACODYL. [Concomitant]
     Active Substance: BISACODYL
     Indication: CONSTIPATION
     Dosage: 5MG
     Route: 048
     Dates: start: 20200813
  7. SEVELAMER [Concomitant]
     Active Substance: SEVELAMER
     Indication: HYPERPHOSPHATAEMIA
     Dosage: 7200 MG
     Route: 048
     Dates: start: 20200525
  8. GABAPENTIN. [Concomitant]
     Active Substance: GABAPENTIN
     Indication: PRODUCT USED FOR UNKNOWN INDICATION
     Dosage: STRENGTH AND DOSE: UNKNWON
  9. CITALOPRAM [Concomitant]
     Active Substance: CITALOPRAM HYDROBROMIDE
     Indication: DEPRESSION
     Dosage: 30MG
     Route: 048
     Dates: start: 20170609
  10. PARACETAMOL [Concomitant]
     Active Substance: ACETAMINOPHEN
     Indication: PAIN
     Dosage: 3990 MG
     Route: 048
     Dates: start: 20171027
  11. PEVISON [Concomitant]
     Indication: SKIN DISORDER
     Dosage: STRENGTH: 10+1MG/G, 2 DOSAGE FORM
     Route: 003
     Dates: start: 20200622
  12. FLUTICASON OG FORMOTEROL [Concomitant]
     Indication: ASTHMA
     Dosage: STRENGTH: 250+10MICROGRAM, 4 DOSAGE FORM
     Route: 055
     Dates: start: 20200902
  13. PREDNISOLONE. [Concomitant]
     Active Substance: PREDNISOLONE
     Indication: ADRENOCORTICAL STEROID THERAPY
     Dosage: 37.5MG
     Route: 048
     Dates: start: 20181114
  14. AMOXICILLIN. [Concomitant]
     Active Substance: AMOXICILLIN
     Indication: PNEUMONIA
     Dosage: 500MG
     Route: 048
     Dates: start: 20200831
  15. PANTOPRAZOLE [Concomitant]
     Active Substance: PANTOPRAZOLE
     Indication: GASTROOESOPHAGEAL REFLUX DISEASE
     Dosage: 40MG
     Route: 048
     Dates: start: 20180917
  16. FEXOFENADINE [Concomitant]
     Active Substance: FEXOFENADINE HYDROCHLORIDE
     Indication: HYPERSENSITIVITY
     Dosage: 120MG
     Route: 048
     Dates: start: 20200604
  17. FELODIPINE. [Concomitant]
     Active Substance: FELODIPINE
     Indication: HYPERTENSION
     Dosage: 5 MG
     Route: 048
     Dates: start: 20200807
  18. TINZAPARIN [Concomitant]
     Active Substance: TINZAPARIN
     Indication: THROMBOSIS PROPHYLAXIS
     Dosage: DOSE: GIVEN IN CONNECTION WITH DIALYSIS, 30000 IU?STRENGTH: 10000 ANTI-XA IU
     Route: 017
     Dates: start: 20171011
  19. LEVOTHYROXINE. [Concomitant]
     Active Substance: LEVOTHYROXINE
     Indication: HYPOTHYROIDISM
     Dosage: DOSE: UNKNOWN?STRENGTH: 50 AND 100MICROGRAM
     Route: 048

REACTIONS (1)
  - Lactic acidosis [Recovered/Resolved]

NARRATIVE: CASE EVENT DATE: 20200924
